FAERS Safety Report 15403400 (Version 1)
Quarter: 2018Q3

REPORT INFORMATION
  Report Type: Spontaneous
  Country: US (occurrence: US)
  Receive Date: 20180918
  Receipt Date: 20180918
  Transmission Date: 20181010
  Serious: No
  Sender: FDA-Public Use
  Company Number: None

PATIENT
  Sex: Female
  Weight: 52.16 kg

DRUGS (1)
  1. AIMOVIG [Suspect]
     Active Substance: ERENUMAB-AOOE
     Indication: HEADACHE
     Dates: start: 20180916, end: 20180916

REACTIONS (4)
  - Middle insomnia [None]
  - Vulvovaginal swelling [None]
  - Vulvovaginal burning sensation [None]
  - Hypersensitivity [None]
